FAERS Safety Report 6137911-5 (Version None)
Quarter: 2009Q1

REPORT INFORMATION
  Report Type: 
  Country: None (occurrence: None)
  Receive Date: 20090327
  Receipt Date: 20090327
  Transmission Date: 20090719
  Serious: No
  Sender: FDA-Public Use
  Company Number: None

PATIENT
  Sex: Female
  Weight: 79.3795 kg

DRUGS (2)
  1. AZMACORT [Suspect]
     Indication: ASTHMA
     Dosage: 2 PUFFS 2 X DAY INHALE
     Route: 055
  2. AZMACORT [Suspect]
     Indication: CHRONIC OBSTRUCTIVE PULMONARY DISEASE
     Dosage: 2 PUFFS 2 X DAY INHALE
     Route: 055

REACTIONS (2)
  - DEPRESSION [None]
  - NERVOUSNESS [None]
